FAERS Safety Report 9472596 (Version 2)
Quarter: 2013Q4

REPORT INFORMATION
  Report Type: Spontaneous
  Country: GB (occurrence: GB)
  Receive Date: 20130823
  Receipt Date: 20131101
  Transmission Date: 20140711
  Serious: Yes (Death)
  Sender: FDA-Public Use
  Company Number: PHFR2013GB004852

PATIENT
  Age: 31 Year
  Sex: Female
  Weight: 42.9 kg

DRUGS (1)
  1. TOBI [Suspect]
     Indication: CYSTIC FIBROSIS
     Dosage: UNK

REACTIONS (2)
  - Cystic fibrosis [Fatal]
  - Infective pulmonary exacerbation of cystic fibrosis [Fatal]
